FAERS Safety Report 5380825-9 (Version None)
Quarter: 2007Q3

REPORT INFORMATION
  Report Type: 
  Country: None (occurrence: None)
  Receive Date: 20070706
  Receipt Date: 20070626
  Transmission Date: 20080115
  Serious: Yes (Death)
  Sender: FDA-Public Use
  Company Number: JP-SANOFI-SYNTHELABO-A01200705287

PATIENT
  Sex: Male
  Weight: 44 kg

DRUGS (7)
  1. FLUOROURACIL [Suspect]
     Indication: COLON CANCER
     Dosage: 500MG/BODY IN BOLUS THEN 3250MG/BODY AS CONTINUOUS INFUSION ON DAY 1-2
     Route: 041
     Dates: start: 20070507, end: 20070508
  2. ISOVORIN [Suspect]
     Indication: COLON CANCER
     Route: 041
     Dates: start: 20070507, end: 20070508
  3. OXALIPLATIN [Suspect]
     Indication: COLON CANCER
     Route: 041
     Dates: start: 20070507, end: 20070507
  4. CONCENTRATED HUMAN RED BLOOD CELLS [Concomitant]
     Dosage: 2 UNITS
     Route: 042
     Dates: start: 20070507, end: 20070507
  5. VANCOMYCIN HCL [Concomitant]
     Route: 048
     Dates: start: 20070501, end: 20070505
  6. DECADRON [Concomitant]
     Route: 041
     Dates: start: 20070507, end: 20070507
  7. KYTRIL [Concomitant]
     Route: 041
     Dates: start: 20070507, end: 20070507

REACTIONS (3)
  - GASTROINTESTINAL OEDEMA [None]
  - ILEUS [None]
  - SHOCK [None]
